FAERS Safety Report 6662533-7 (Version None)
Quarter: 2010Q1

REPORT INFORMATION
  Report Type: 
  Country: None (occurrence: None)
  Receive Date: 20100329
  Receipt Date: 20100317
  Transmission Date: 20100710
  Serious: Yes (Other)
  Sender: FDA-Public Use
  Company Number: 8051152

PATIENT
  Sex: Female
  Weight: 69 kg

DRUGS (9)
  1. CERTOLIZUMAB PEGOL (CERTOLIZUMAB PEGOL) [Suspect]
     Indication: RHEUMATOID ARTHRITIS
     Dosage: 200 MG 1X/2 WEEKS SUBCUTANEOUS, 400 MG 1X/2 WEEKS SUBUCTANEOUS, 200 MG 1X/2 WEEKS SUBCUTANEOUS
     Route: 058
     Dates: start: 20051130, end: 20060517
  2. CERTOLIZUMAB PEGOL (CERTOLIZUMAB PEGOL) [Suspect]
     Indication: RHEUMATOID ARTHRITIS
     Dosage: 200 MG 1X/2 WEEKS SUBCUTANEOUS, 400 MG 1X/2 WEEKS SUBUCTANEOUS, 200 MG 1X/2 WEEKS SUBCUTANEOUS
     Route: 058
     Dates: start: 20060517, end: 20071031
  3. CERTOLIZUMAB PEGOL (CERTOLIZUMAB PEGOL) [Suspect]
     Indication: RHEUMATOID ARTHRITIS
     Dosage: 200 MG 1X/2 WEEKS SUBCUTANEOUS, 400 MG 1X/2 WEEKS SUBUCTANEOUS, 200 MG 1X/2 WEEKS SUBCUTANEOUS
     Route: 058
     Dates: start: 20071114, end: 20090805
  4. METHOTREXATE [Concomitant]
  5. PREDNISOLONE [Concomitant]
  6. FOLIC ACID [Concomitant]
  7. DOMPERDONE [Concomitant]
  8. LANSOPRAZOLE [Concomitant]
  9. IMIPRAMINE HYDROCHLORIDE [Concomitant]

REACTIONS (4)
  - DYSPEPSIA [None]
  - HIATUS HERNIA [None]
  - HODGKIN'S DISEASE [None]
  - THYROID NEOPLASM [None]
